FAERS Safety Report 6064373-9 (Version None)
Quarter: 2009Q1

REPORT INFORMATION
  Report Type: 
  Country: None (occurrence: None)
  Receive Date: 20090203
  Receipt Date: 20090203
  Transmission Date: 20090719
  Serious: No
  Sender: FDA-Public Use
  Company Number: None

PATIENT
  Age: 44 Year
  Sex: Female
  Weight: 54.4316 kg

DRUGS (1)
  1. LEVAQUIN [Suspect]
     Indication: BRONCHITIS
     Dosage: 1 TABLET ONCE DAILY
     Dates: start: 20090103, end: 20090103

REACTIONS (7)
  - APHONIA [None]
  - CHEILITIS [None]
  - ERYTHEMA OF EYELID [None]
  - EYELID OEDEMA [None]
  - ORAL PRURITUS [None]
  - PAIN [None]
  - PHARYNGEAL OEDEMA [None]
